FAERS Safety Report 21542072 (Version 2)
Quarter: 2022Q4

REPORT INFORMATION
  Report Type: Spontaneous
  Country: IN (occurrence: IN)
  Receive Date: 20221102
  Receipt Date: 20221114
  Transmission Date: 20230112
  Serious: Yes (Other)
  Sender: FDA-Public Use
  Company Number: IN-PFIZER INC-PV202200093491

PATIENT
  Age: 64 Year
  Sex: Female
  Weight: 65 kg

DRUGS (8)
  1. MEROPENEM [Suspect]
     Active Substance: MEROPENEM
     Dosage: STAT
     Route: 042
  2. MEROPENEM [Suspect]
     Active Substance: MEROPENEM
     Dosage: 500 MG, 2X/DAY
     Route: 042
  3. RECLIDE [Concomitant]
     Indication: Blood glucose abnormal
     Dosage: 30 MG, 10 YEARS, 1-0-0 BEFORE FOOD
  4. ROZAT [Concomitant]
     Indication: Cardiac disorder
     Dosage: 20 MG, LAST 2 YEARS, 0-0-1 AFTER FOOD
  5. ASPIRIN\CLOPIDOGREL BISULFATE [Concomitant]
     Active Substance: ASPIRIN\CLOPIDOGREL BISULFATE
     Indication: Cardiac disorder
     Dosage: 75 MG, LAST 2 YEARS, 0-1-0 AFTER FOOD
  6. SPIRONOLACTONE\TORSEMIDE [Concomitant]
     Active Substance: SPIRONOLACTONE\TORSEMIDE
     Indication: Cardiac disorder
     Dosage: 5 MG, LAST 2 YEARS, 1-0-0 AFTER FOOD
  7. LEVOTHYROXINE [Concomitant]
     Active Substance: LEVOTHYROXINE
     Dosage: 100 UG, 10 YEARS
  8. MORPHINE SULFATE [Concomitant]
     Active Substance: MORPHINE SULFATE
     Dosage: 6 MONTHS

REACTIONS (3)
  - Pancreatitis acute [Unknown]
  - Oesophageal candidiasis [Unknown]
  - Off label use [Unknown]
